FAERS Safety Report 8902658 (Version 1)
Quarter: 2012Q4

REPORT INFORMATION
  Report Type: 
  Country: US (occurrence: US)
  Receive Date: 20121112
  Receipt Date: 20121112
  Transmission Date: 20130627
  Serious: Yes (Hospitalization, Other)
  Sender: FDA-Public Use
  Company Number: US-CELGENEUS-163-21880-12100988

PATIENT
  Age: 82 Year
  Sex: Female

DRUGS (3)
  1. REVLIMID [Suspect]
     Indication: MULTIPLE MYELOMA
     Dosage: 15 Milligram
     Route: 048
     Dates: start: 20120805
  2. REVLIMID [Suspect]
     Dosage: 15-25mg
     Route: 048
     Dates: start: 201205
  3. REVLIMID [Suspect]
     Dosage: 10 Milligram
     Route: 048
     Dates: start: 201210

REACTIONS (7)
  - Blood immunoglobulin G decreased [Unknown]
  - Pallor [Unknown]
  - Pneumonia [Unknown]
  - Pyrexia [Unknown]
  - Asthenia [Unknown]
  - Cold sweat [Unknown]
  - Malaise [Unknown]
